FAERS Safety Report 4336031-X (Version None)
Quarter: 2004Q2

REPORT INFORMATION
  Report Type: 
  Country: None (occurrence: None)
  Receive Date: 20040406
  Receipt Date: 20040324
  Transmission Date: 20050107
  Serious: Yes (Other)
  Sender: FDA-Public Use
  Company Number: 2003164947CA

PATIENT
  Age: 28 Year
  Sex: Female
  Weight: 54.4 kg

DRUGS (4)
  1. DEPO-PROVERA [Suspect]
     Indication: CONTRACEPTION
     Dosage: 150 MG/12 WEEKS, FIRST INJECTION, INTRAMUSCULAR; 150 MG/11 WEKKS MOST RECENT INJ., INTRAMUSCULAR
     Route: 030
     Dates: start: 20010215, end: 20010215
  2. DEPO-PROVERA [Suspect]
     Indication: CONTRACEPTION
     Dosage: 150 MG/12 WEEKS, FIRST INJECTION, INTRAMUSCULAR; 150 MG/11 WEKKS MOST RECENT INJ., INTRAMUSCULAR
     Route: 030
     Dates: start: 20030505, end: 20030505
  3. LEVOTHYROXINE SODIUM [Concomitant]
  4. ACETAMINOPHEN [Concomitant]

REACTIONS (6)
  - ABORTION SPONTANEOUS [None]
  - COMPLICATIONS OF MATERNAL EXPOSURE TO THERAPEUTIC DRUGS [None]
  - DRUG INEFFECTIVE [None]
  - MATERNAL DRUGS AFFECTING FOETUS [None]
  - MENORRHAGIA [None]
  - PREGNANCY WITH INJECTABLE CONTRACEPTIVE [None]
